FAERS Safety Report 6473082-3 (Version None)
Quarter: 2009Q4

REPORT INFORMATION
  Report Type: 
  Country: None (occurrence: None)
  Receive Date: 20091204
  Receipt Date: 20091124
  Transmission Date: 20100525
  Serious: Yes (Other)
  Sender: FDA-Public Use
  Company Number: US-RB-026256-09

PATIENT
  Age: 62 Year
  Sex: Female

DRUGS (8)
  1. DELSYM ADULT COUGH SYRUP [Suspect]
     Dosage: TOK 2 TEASPOONS OF PRODUCT
     Route: 048
     Dates: start: 20091123
  2. KEFLEX [Concomitant]
  3. 3 NITROGLYCERINES [Concomitant]
  4. DARVOCET [Concomitant]
  5. MORPHINE [Concomitant]
  6. STEROIDS [Concomitant]
  7. BENADRYL [Concomitant]
  8. PREDNISONE [Concomitant]

REACTIONS (11)
  - ASTHENIA [None]
  - CHEST PAIN [None]
  - DYSPNOEA [None]
  - ERYTHEMA [None]
  - FEELING ABNORMAL [None]
  - FLUSHING [None]
  - NAUSEA [None]
  - PRURITUS [None]
  - SWELLING [None]
  - SWELLING FACE [None]
  - VOMITING [None]
